FAERS Safety Report 9855579 (Version 1)
Quarter: 2014Q1

REPORT INFORMATION
  Report Type: Spontaneous
  Country: US (occurrence: None)
  Receive Date: 20140129
  Receipt Date: 20140129
  Transmission Date: 20141002
  Serious: Yes (Death)
  Sender: FDA-Public Use
  Company Number: None

PATIENT
  Age: 63 Year
  Sex: Male
  Weight: 144.8 kg

DRUGS (14)
  1. ENOXAPARIN [Suspect]
     Indication: DEEP VEIN THROMBOSIS
     Route: 058
     Dates: start: 20131220, end: 20131225
  2. ENOXAPARIN [Suspect]
     Indication: DEEP VEIN THROMBOSIS
     Route: 058
     Dates: start: 20131220, end: 20131225
  3. FUROSEMIDE [Concomitant]
  4. MILK OF MAGNESIA [Concomitant]
  5. ONDANSETRON [Concomitant]
  6. ROCEPHIN [Concomitant]
  7. GLIMEPRIDE [Concomitant]
  8. NOVOLOG [Concomitant]
  9. COREG [Concomitant]
  10. DOSS [Concomitant]
  11. MORPHINE [Concomitant]
  12. NORCO [Concomitant]
  13. SANDOSTATIN [Concomitant]
  14. FLONASE [Concomitant]

REACTIONS (2)
  - Retroperitoneal haemorrhage [None]
  - Renal impairment [None]
